FAERS Safety Report 8907469 (Version 1)
Quarter: 2012Q4

REPORT INFORMATION
  Report Type: 
  Country: GB (occurrence: GB)
  Receive Date: 20121114
  Receipt Date: 20121114
  Transmission Date: 20130627
  Serious: Yes (Other)
  Sender: FDA-Public Use
  Company Number: PHHY2012GB104787

PATIENT
  Sex: Female

DRUGS (2)
  1. WARFARIN SODIUM [Suspect]
  2. ONGLYZA [Suspect]

REACTIONS (3)
  - Dysphagia [Unknown]
  - Haemorrhagic stroke [Unknown]
  - Haemorrhage [Unknown]
